FAERS Safety Report 8908707 (Version 1)
Quarter: 2012Q4

REPORT INFORMATION
  Report Type: 
  Country: US (occurrence: US)
  Receive Date: 20121113
  Receipt Date: 20121113
  Transmission Date: 20130627
  Serious: No
  Sender: FDA-Public Use
  Company Number: US-AMGEN-USASP2012011892

PATIENT
  Age: 53 Year
  Sex: Female

DRUGS (13)
  1. ENBREL [Suspect]
  2. OLUX E [Concomitant]
  3. JANUMET [Concomitant]
  4. TOPAMAX [Concomitant]
     Dosage: 25 mg, UNK
  5. PATANASE [Concomitant]
  6. SYNTHROID [Concomitant]
     Dosage: 100 mug, UNK
  7. MAXAIR [Concomitant]
     Dosage: 200 mug, UNK
  8. VERAMYST [Concomitant]
     Dosage: 27.5 mug, UNK
  9. TACLONEX [Concomitant]
  10. BENICAR [Concomitant]
     Dosage: 5 mg, UNK
  11. DEXILANT [Concomitant]
     Dosage: 30 mg, UNK
  12. DERMA SMOOTHE [Concomitant]
  13. QVAR [Concomitant]
     Dosage: 40 mug, UNK

REACTIONS (7)
  - Oropharyngeal pain [Unknown]
  - Odynophagia [Unknown]
  - Gastroenteritis viral [Unknown]
  - Sinusitis [Unknown]
  - Ear infection [Unknown]
  - Lymphadenopathy [Unknown]
  - Pyrexia [Recovered/Resolved]
